FAERS Safety Report 8993153 (Version 1)
Quarter: 2013Q1

REPORT INFORMATION
  Report Type: Spontaneous
  Country: BR (occurrence: BR)
  Receive Date: 20130102
  Receipt Date: 20130102
  Transmission Date: 20140127
  Serious: Yes (Hospitalization)
  Sender: FDA-Public Use
  Company Number: BR-009507513-1211BRA010773

PATIENT
  Age: 43 None
  Sex: Male
  Weight: 89 kg

DRUGS (5)
  1. VICTRELIS [Suspect]
     Indication: HEPATITIS C
     Dosage: 800 MG, TID
     Route: 048
     Dates: start: 20120625
  2. PEGASYS [Concomitant]
     Indication: HEPATITIS C
     Dosage: 180 MICROGRAM, QW
     Route: 058
     Dates: start: 20120625
  3. RIBAVIRIN [Concomitant]
     Indication: HEPATITIS C
     Dosage: 5 DF, QD
     Route: 048
     Dates: start: 20120625
  4. VENLIFT [Concomitant]
     Indication: SCHIZOPHRENIA
     Dosage: 75 MG, QAM
     Route: 048
     Dates: start: 1992
  5. STILNOX [Concomitant]
     Indication: INSOMNIA
     Dosage: 10 MG, QPM
     Route: 048
     Dates: start: 1992

REACTIONS (5)
  - Anal fissure excision [Recovering/Resolving]
  - Anal fissure [Not Recovered/Not Resolved]
  - Diarrhoea [Not Recovered/Not Resolved]
  - Impaired healing [Not Recovered/Not Resolved]
  - White blood cell count decreased [Not Recovered/Not Resolved]
